FAERS Safety Report 8177384-4 (Version None)
Quarter: 2012Q1

REPORT INFORMATION
  Report Type: 
  Country: None (occurrence: None)
  Receive Date: 20120301
  Receipt Date: 20120223
  Transmission Date: 20120608
  Serious: Yes (Hospitalization)
  Sender: FDA-Public Use
  Company Number: FR-ROCHE-1043016

PATIENT
  Age: 53 Year
  Sex: Female

DRUGS (2)
  1. CORTICOID [Concomitant]
     Indication: PRODUCT USED FOR UNKNOWN INDICATION
  2. ACTEMRA [Suspect]
     Indication: PRODUCT USED FOR UNKNOWN INDICATION

REACTIONS (3)
  - URINARY TRACT INFECTION [None]
  - JOINT ABSCESS [None]
  - DIABETES MELLITUS [None]
